FAERS Safety Report 4875893-4 (Version None)
Quarter: 2006Q1

REPORT INFORMATION
  Report Type: 
  Country: None (occurrence: None)
  Receive Date: 20060109
  Receipt Date: 20051006
  Transmission Date: 20060701
  Serious: Yes (Hospitalization)
  Sender: FDA-Public Use
  Company Number: US-MERCK-0510USA03927

PATIENT
  Age: 36 Year
  Sex: Male
  Weight: 99 kg

DRUGS (3)
  1. VIOXX [Suspect]
     Indication: PAIN IN EXTREMITY
     Route: 048
     Dates: start: 19991118, end: 20040828
  2. VIOXX [Suspect]
     Route: 048
     Dates: start: 19991118, end: 20040828
  3. VIOXX [Suspect]
     Route: 048
     Dates: start: 19991118, end: 20040828

REACTIONS (3)
  - CEREBROVASCULAR ACCIDENT [None]
  - DEPRESSION [None]
  - LACUNAR INFARCTION [None]
